FAERS Safety Report 7773108-0 (Version None)
Quarter: 2011Q3

REPORT INFORMATION
  Report Type: 
  Country: None (occurrence: None)
  Receive Date: 20110922
  Receipt Date: 20100418
  Transmission Date: 20111222
  Serious: Yes (Other)
  Sender: FDA-Public Use
  Company Number: US-ASTRAZENECA-2008UW07387

PATIENT
  Age: 552 Month
  Sex: Female
  Weight: 127 kg

DRUGS (12)
  1. LAMICTAL [Concomitant]
     Dates: start: 20060101
  2. SEROQUEL [Suspect]
     Indication: SLEEP DISORDER
     Route: 048
     Dates: start: 20011227
  3. SEROQUEL [Suspect]
     Indication: PSYCHOTIC DISORDER
     Route: 048
     Dates: start: 20011227
  4. SEROQUEL [Suspect]
     Dosage: 25-200 MG
     Route: 048
     Dates: start: 20020213
  5. THORAZINE [Concomitant]
  6. WELLBUTRIN [Concomitant]
     Dates: start: 20020117
  7. FLUOXETINE HCL [Concomitant]
     Dates: start: 20020117
  8. AMBIEN [Concomitant]
     Dates: start: 20020118
  9. SEROQUEL [Suspect]
     Dosage: 25-200 MG
     Route: 048
     Dates: start: 20020213
  10. CLONAZEPAM [Concomitant]
     Dates: start: 20020117
  11. HALDOL [Concomitant]
  12. ABILIFY [Concomitant]

REACTIONS (9)
  - SPINAL DISORDER [None]
  - RENAL FAILURE [None]
  - SPINAL COLUMN STENOSIS [None]
  - INTERVERTEBRAL DISC PROTRUSION [None]
  - WEIGHT INCREASED [None]
  - TARDIVE DYSKINESIA [None]
  - TYPE 2 DIABETES MELLITUS [None]
  - OBESITY [None]
  - BACK INJURY [None]
